FAERS Safety Report 20683477 (Version 1)
Quarter: 2022Q2

REPORT INFORMATION
  Report Type: Spontaneous
  Country: US (occurrence: US)
  Receive Date: 20220407
  Receipt Date: 20220407
  Transmission Date: 20220721
  Serious: Yes (Death, Hospitalization)
  Sender: FDA-Public Use
  Company Number: US-MYLANLABS-2022M1024946

PATIENT
  Age: 22 Month
  Sex: Male

DRUGS (4)
  1. BUSULFAN [Suspect]
     Active Substance: BUSULFAN
     Indication: Neuroblastoma
     Dosage: TOTAL DOSE- 150MG , 6 COURSES
     Route: 065
  2. IMATINIB [Suspect]
     Active Substance: IMATINIB
     Indication: Respiratory failure
     Dosage: UNK
     Route: 065
  3. METHYLPREDNISOLONE [Suspect]
     Active Substance: METHYLPREDNISOLONE
     Indication: Respiratory failure
     Dosage: UNK
     Route: 042
  4. HUMAN IMMUNOGLOBULIN G [Suspect]
     Active Substance: HUMAN IMMUNOGLOBULIN G
     Indication: Respiratory failure
     Dosage: UNK
     Route: 042

REACTIONS (7)
  - Respiratory failure [Fatal]
  - Interstitial lung disease [Fatal]
  - Alveolar proteinosis [Fatal]
  - Pneumothorax [Fatal]
  - Bronchiectasis [Fatal]
  - Drug ineffective for unapproved indication [Fatal]
  - Off label use [Unknown]
